FAERS Safety Report 9341663 (Version 1)
Quarter: 2013Q2

REPORT INFORMATION
  Report Type: Spontaneous
  Country: NL (occurrence: NL)
  Receive Date: 20130611
  Receipt Date: 20130611
  Transmission Date: 20140414
  Serious: Yes (Other)
  Sender: FDA-Public Use
  Company Number: NL-AMGEN-NLDSP2013040846

PATIENT
  Age: 46 Year
  Sex: Female

DRUGS (1)
  1. XGEVA [Suspect]
     Indication: BONE DISORDER
     Dosage: 120 UNK, Q4WK
     Route: 058
     Dates: start: 201206, end: 201305

REACTIONS (3)
  - Abasia [Unknown]
  - Pain in extremity [Unknown]
  - Back pain [Unknown]
